FAERS Safety Report 7228865-9 (Version None)
Quarter: 2011Q1

REPORT INFORMATION
  Report Type: 
  Country: None (occurrence: None)
  Receive Date: 20110117
  Receipt Date: 20110107
  Transmission Date: 20110831
  Serious: Yes (Other)
  Sender: FDA-Public Use
  Company Number: FI-ELI_LILLY_AND_COMPANY-FI201010003913

PATIENT
  Sex: Female

DRUGS (3)
  1. MEDROL [Concomitant]
     Dosage: 8 MG, DAILY (1/D)
  2. FORTEO [Suspect]
     Indication: OSTEOPOROSIS
     Dosage: 20 UG, DAILY (1/D)
     Route: 058
     Dates: start: 20100101, end: 20100101
  3. SANDIMMUNE [Concomitant]
     Dosage: UNK, DAILY (1/D)

REACTIONS (3)
  - PRESYNCOPE [None]
  - CONFUSIONAL STATE [None]
  - MUSCLE SPASMS [None]
